FAERS Safety Report 26065835 (Version 2)
Quarter: 2025Q4

REPORT INFORMATION
  Report Type: Report from Study
  Country: UY (occurrence: UY)
  Receive Date: 20251119
  Receipt Date: 20251211
  Transmission Date: 20260118
  Serious: Yes (Hospitalization)
  Sender: ABBVIE
  Company Number: UY-ABBVIE-6551945

PATIENT
  Age: 68 Year
  Sex: Male

DRUGS (1)
  1. RINVOQ [Suspect]
     Active Substance: UPADACITINIB
     Indication: Rheumatoid arthritis
     Dosage: PRESENTATION: RINVOQ 15MG X 30 TABLETS
     Route: 048
     Dates: start: 20210406

REACTIONS (4)
  - Syncope [Not Recovered/Not Resolved]
  - COVID-19 [Recovering/Resolving]
  - Cardiac disorder [Not Recovered/Not Resolved]
  - Lung disorder [Not Recovered/Not Resolved]

NARRATIVE: CASE EVENT DATE: 20251123
